FAERS Safety Report 7981504-1 (Version None)
Quarter: 2011Q4

REPORT INFORMATION
  Report Type: 
  Country: None (occurrence: None)
  Receive Date: 20111215
  Receipt Date: 20111208
  Transmission Date: 20120403
  Serious: Yes (Other)
  Sender: FDA-Public Use
  Company Number: GB-PFIZER INC-2011300422

PATIENT
  Age: 74 Year
  Sex: Female

DRUGS (3)
  1. SILDENAFIL CITRATE [Suspect]
     Indication: PULMONARY HYPERTENSION
     Dosage: 50 MG, 3X/DAY
     Route: 048
     Dates: start: 20111018, end: 20111114
  2. FUROSEMIDE [Concomitant]
     Dosage: 120 MG, UNK
     Route: 048
  3. BOSENTAN [Concomitant]
     Dosage: 125 MG, 2X/DAY
     Route: 048

REACTIONS (2)
  - MOOD ALTERED [None]
  - HYPOMANIA [None]
